FAERS Safety Report 21354466 (Version 1)
Quarter: 2022Q3

REPORT INFORMATION
  Report Type: Spontaneous
  Country: US (occurrence: US)
  Receive Date: 20220920
  Receipt Date: 20220920
  Transmission Date: 20221027
  Serious: No
  Sender: FDA-Public Use
  Company Number: US-PFIZER INC-2020520844

PATIENT
  Age: 10 Year
  Sex: Female

DRUGS (1)
  1. GENOTROPIN [Suspect]
     Active Substance: SOMATROPIN
     Dosage: 0.6 MG ALTERNATING 0.8MG, 6 DAYS A WEEK
     Dates: start: 20170927

REACTIONS (2)
  - Device failure [Unknown]
  - Product prescribing error [Unknown]
